FAERS Safety Report 8532481 (Version 2)
Quarter: 2014Q4

REPORT INFORMATION
  Report Type: Spontaneous
  Country: US (occurrence: None)
  Receive Date: 20120418
  Receipt Date: 20141121
  Transmission Date: 20150529
  Serious: Yes (Other)
  Sender: FDA-Public Use
  Company Number: 2012-001456

PATIENT
  Age: 63 Year
  Sex: Male

DRUGS (7)
  1. ACTONEL [Suspect]
     Active Substance: RISEDRONATE SODIUM
     Indication: OSTEOPOROSIS
     Dosage: 35 MG ONCE WEEKLY, ORAL
     Route: 048
  2. POLYETHYLENE GLYCOLS [Concomitant]
     Active Substance: POLYETHYLENE GLYCOLS
  3. ASPIRIN (ACETYLSALICYLIC ACID) [Concomitant]
     Active Substance: ASPIRIN
  4. LIPITOR [Concomitant]
     Active Substance: ATORVASTATIN CALCIUM
  5. VITAMIN D?/00318501/ (COLECALCIFEROL) [Concomitant]
  6. ANTACIDS [Concomitant]
     Active Substance: UNSPECIFIED INGREDIENT
  7. CALCIUM CARBONATE. [Concomitant]
     Active Substance: CALCIUM CARBONATE

REACTIONS (13)
  - Drug administration error [None]
  - Bone disorder [None]
  - Throat cancer [None]
  - Dysphagia [None]
  - Back disorder [None]
  - Pelvic pain [None]
  - Myocardial infarction [None]
  - Drug ineffective [None]
  - Back pain [None]
  - Barrett^s oesophagus [None]
  - Muscle tightness [None]
  - Bone density decreased [None]
  - Exostosis [None]
